FAERS Safety Report 8549468-X (Version None)
Quarter: 2012Q3

REPORT INFORMATION
  Report Type: 
  Country: None (occurrence: None)
  Receive Date: 20120730
  Receipt Date: 20120711
  Transmission Date: 20120928
  Serious: No
  Sender: FDA-Public Use
  Company Number: US-JNJFOC-20120706989

PATIENT
  Age: 4 Decade
  Sex: Female

DRUGS (4)
  1. ANTIDEPRESSANT (NOS) [Concomitant]
     Route: 048
  2. GEODON [Concomitant]
     Route: 048
  3. MOOD STABILIZER, NOS [Concomitant]
     Route: 065
  4. INVEGA SUSTENNA [Suspect]
     Indication: PRODUCT USED FOR UNKNOWN INDICATION
     Dosage: 234 MG ONCE
     Route: 030
     Dates: start: 20120101, end: 20120101

REACTIONS (1)
  - GALACTORRHOEA [None]
